FAERS Safety Report 6589596-1 (Version None)
Quarter: 2010Q1

REPORT INFORMATION
  Report Type: 
  Country: None (occurrence: None)
  Receive Date: 20100212
  Receipt Date: 20100127
  Transmission Date: 20100710
  Serious: Yes (Hospitalization, Other)
  Sender: FDA-Public Use
  Company Number: AUR-APL-2010-00324

PATIENT
  Age: 51 Year
  Sex: Female
  Weight: 67.586 kg

DRUGS (5)
  1. CITALOPRAM [Suspect]
     Indication: BIPOLAR DISORDER
  2. CITALOPRAM [Suspect]
     Indication: MANIA
  3. ZIPRASIDONE (GEODON - PFIZER) 20MG CAPSULES [Suspect]
     Indication: SCHIZOPHRENIA
     Dosage: 20MG, BID, ORAL
     Route: 048
  4. ABILIFY [Suspect]
     Dates: start: 20090101
  5. CLONAZEPAM [Concomitant]

REACTIONS (5)
  - DRUG INEFFECTIVE [None]
  - HALLUCINATION, AUDITORY [None]
  - MANIA [None]
  - PARANOIA [None]
  - SOCIAL PROBLEM [None]
